FAERS Safety Report 13001437 (Version 1)
Quarter: 2016Q4

REPORT INFORMATION
  Report Type: Report from Study
  Country: MX (occurrence: MX)
  Receive Date: 20161206
  Receipt Date: 20161206
  Transmission Date: 20170207
  Serious: Yes (Death)
  Sender: FDA-Public Use
  Company Number: PHHY2016MX167197

PATIENT
  Sex: Male

DRUGS (1)
  1. STALEVO [Suspect]
     Active Substance: CARBIDOPA\ENTACAPONE\LEVODOPA
     Indication: PRODUCT USED FOR UNKNOWN INDICATION
     Dosage: 1 DF (LEVODOPA 200 MG/CARBIDOPA 50 /ENTACAPONE 200 MG), UNK
     Route: 065

REACTIONS (1)
  - Death [Fatal]
